FAERS Safety Report 4773555-5 (Version None)
Quarter: 2005Q3

REPORT INFORMATION
  Report Type: 
  Country: None (occurrence: None)
  Receive Date: 20050920
  Receipt Date: 20050202
  Transmission Date: 20060218
  Serious: No
  Sender: FDA-Public Use
  Company Number: US-BRISTOL-MYERS SQUIBB COMPANY-12848586

PATIENT
  Age: 58 Year
  Weight: 51 kg

DRUGS (8)
  1. BUSPAR [Suspect]
     Indication: ANXIETY
     Route: 048
     Dates: start: 20050128
  2. LANTUS [Concomitant]
     Dosage: 19 UNITS AT HOUR OF SLEEP.
  3. COZAAR [Concomitant]
  4. MULTI-VITAMINS [Concomitant]
  5. ALPHA-LIPOIC ACID [Concomitant]
  6. ASPIRIN [Concomitant]
  7. CALCIUM+MAGNESIUM+VITAMIN D [Concomitant]
  8. COENZYME Q10 [Concomitant]

REACTIONS (1)
  - BLOOD GLUCOSE INCREASED [None]
